FAERS Safety Report 7759269-8 (Version None)
Quarter: 2011Q3

REPORT INFORMATION
  Report Type: 
  Country: None (occurrence: None)
  Receive Date: 20110915
  Receipt Date: 20110902
  Transmission Date: 20111222
  Serious: Yes (Hospitalization, Other)
  Sender: FDA-Public Use
  Company Number: 2011SP036558

PATIENT
  Age: 50 Year
  Sex: Female

DRUGS (14)
  1. KEPPRA [Concomitant]
  2. TEMODAR [Suspect]
     Indication: ASTROCYTOMA
     Dosage: 100 MG, QD, PO
     Route: 048
     Dates: start: 20080103
  3. XANAX [Concomitant]
  4. PERCOCET [Concomitant]
  5. ASPIRIN [Concomitant]
  6. BENADRYL [Concomitant]
  7. ZOFRAN [Concomitant]
  8. PROVENTIL [Concomitant]
  9. LEXAPRO [Concomitant]
  10. PREVACID [Concomitant]
  11. ZANAFLEX [Concomitant]
  12. VESICARE [Concomitant]
  13. NITROGLYCERIN [Concomitant]
  14. LYRICA [Concomitant]

REACTIONS (7)
  - PANCYTOPENIA [None]
  - BLOOD LACTATE DEHYDROGENASE INCREASED [None]
  - SUBCUTANEOUS ABSCESS [None]
  - ASPARTATE AMINOTRANSFERASE INCREASED [None]
  - STAPHYLOCOCCAL SKIN INFECTION [None]
  - ACUTE MONOCYTIC LEUKAEMIA [None]
  - ALANINE AMINOTRANSFERASE INCREASED [None]
